FAERS Safety Report 4005465 (Version 1)
Quarter: 2020Q3

REPORT INFORMATION
  Report Type: Spontaneous
  Country: US (occurrence: None)
  Receive Date: 20030910
  Receipt Date: 20030910
  Transmission Date: 20201104
  Serious: Yes (Death)
  Sender: FDA-Public Use
  Company Number: 2003UW11042

PATIENT
  Age: 44 Year
  Sex: Female
  Weight: 56.3 kg

DRUGS (5)
  1. LIDOCAINE. [Suspect]
     Active Substance: LIDOCAINE
  2. PROPOFOL. [Suspect]
     Active Substance: PROPOFOL
  3. MIDAZOLAM HYDROCHLORIDE. [Suspect]
     Active Substance: MIDAZOLAM HYDROCHLORIDE
  4. EPHEDRINE. [Suspect]
     Active Substance: EPHEDRINE
  5. ATROPINE. [Suspect]
     Active Substance: ATROPINE

REACTIONS (3)
  - Hypoxia [None]
  - Brain oedema [None]
  - Toxicity to various agents [None]

NARRATIVE: CASE EVENT DATE: 200006
